FAERS Safety Report 7812937-1 (Version None)
Quarter: 2011Q4

REPORT INFORMATION
  Report Type: 
  Country: None (occurrence: None)
  Receive Date: 20111013
  Receipt Date: 20111006
  Transmission Date: 20120403
  Serious: Yes (Death)
  Sender: FDA-Public Use
  Company Number: CHPA2011US13742

PATIENT
  Age: 91 Year
  Sex: Female

DRUGS (1)
  1. LAMISIL [Suspect]
     Indication: ONYCHOMYCOSIS
     Dosage: APPLY SPARINGLY, BID
     Route: 061
     Dates: start: 20080101, end: 20080101

REACTIONS (3)
  - OFF LABEL USE [None]
  - FATIGUE [None]
  - CARDIAC FAILURE [None]
